FAERS Safety Report 7186144-2 (Version None)
Quarter: 2010Q4

REPORT INFORMATION
  Report Type: 
  Country: None (occurrence: None)
  Receive Date: 20101222
  Receipt Date: 20101216
  Transmission Date: 20110411
  Serious: Yes (Other)
  Sender: FDA-Public Use
  Company Number: DE-ABBOTT-10P-062-0677395-00

PATIENT
  Sex: Male
  Weight: 78.5 kg

DRUGS (35)
  1. HUMIRA [Suspect]
     Indication: ANKYLOSING SPONDYLITIS
     Dates: start: 20070806
  2. HUMIRA [Suspect]
     Dates: start: 20101016
  3. OMEP [Concomitant]
     Indication: PRODUCT USED FOR UNKNOWN INDICATION
  4. IRON SUBSTITUTION TABLETS [Concomitant]
     Indication: PRODUCT USED FOR UNKNOWN INDICATION
  5. ANTICOAGULATION MEDICATION [Concomitant]
     Indication: PRODUCT USED FOR UNKNOWN INDICATION
  6. ANOTHER ANTICOAGULATION MEDICATION [Concomitant]
     Indication: PRODUCT USED FOR UNKNOWN INDICATION
  7. PARKINSON MEDICATION [Concomitant]
     Indication: PRODUCT USED FOR UNKNOWN INDICATION
  8. DIURETICS [Concomitant]
     Indication: PRODUCT USED FOR UNKNOWN INDICATION
  9. ANTIARRHYTHMIA MEDICATION [Concomitant]
     Indication: PRODUCT USED FOR UNKNOWN INDICATION
  10. AMIODARONE HCL [Concomitant]
     Indication: PRODUCT USED FOR UNKNOWN INDICATION
  11. FRAXIPARIN [Concomitant]
     Indication: PRODUCT USED FOR UNKNOWN INDICATION
  12. ASPIRIN [Concomitant]
     Indication: PRODUCT USED FOR UNKNOWN INDICATION
  13. CLOPIDOGREL [Concomitant]
     Indication: PRODUCT USED FOR UNKNOWN INDICATION
  14. L-DOPA [Concomitant]
     Indication: PRODUCT USED FOR UNKNOWN INDICATION
     Dosage: 500/50
  15. ESOMEPRAZOLE MAGNESIUM [Concomitant]
     Indication: PRODUCT USED FOR UNKNOWN INDICATION
  16. PRAMIPEXOLE [Concomitant]
     Indication: PRODUCT USED FOR UNKNOWN INDICATION
  17. BIPERIDIN [Concomitant]
     Indication: PRODUCT USED FOR UNKNOWN INDICATION
  18. ALLOPURINOL [Concomitant]
     Indication: PRODUCT USED FOR UNKNOWN INDICATION
  19. PIAZETAM [Concomitant]
     Indication: PRODUCT USED FOR UNKNOWN INDICATION
  20. TORSEMIDE [Concomitant]
     Indication: PRODUCT USED FOR UNKNOWN INDICATION
  21. TORSEMIDE [Concomitant]
  22. CIPRO [Concomitant]
     Indication: PRODUCT USED FOR UNKNOWN INDICATION
  23. CLEXANE [Concomitant]
     Indication: PRODUCT USED FOR UNKNOWN INDICATION
     Route: 058
  24. LEPONEX [Concomitant]
     Indication: PRODUCT USED FOR UNKNOWN INDICATION
  25. BISOPROLOL PLUS [Concomitant]
     Indication: PRODUCT USED FOR UNKNOWN INDICATION
     Dosage: 5/12.5
  26. PIRACETAM [Concomitant]
     Indication: PRODUCT USED FOR UNKNOWN INDICATION
  27. AKINETON [Concomitant]
     Indication: PRODUCT USED FOR UNKNOWN INDICATION
  28. SIFROL [Concomitant]
     Indication: PRODUCT USED FOR UNKNOWN INDICATION
  29. KALINOR [Concomitant]
     Indication: PRODUCT USED FOR UNKNOWN INDICATION
     Dosage: FIZZY TABLET
  30. DECORTIN H [Concomitant]
     Indication: PRODUCT USED FOR UNKNOWN INDICATION
  31. CORDAREX [Concomitant]
     Indication: PRODUCT USED FOR UNKNOWN INDICATION
  32. ISCOVER [Concomitant]
     Indication: PRODUCT USED FOR UNKNOWN INDICATION
  33. FERROUS SULFATE TAB [Concomitant]
     Indication: PRODUCT USED FOR UNKNOWN INDICATION
  34. FORTIMEL DRINK CUPS [Concomitant]
     Indication: PRODUCT USED FOR UNKNOWN INDICATION
  35. CLOZAPINE [Concomitant]
     Indication: PRODUCT USED FOR UNKNOWN INDICATION

REACTIONS (11)
  - AORTIC VALVE STENOSIS [None]
  - ARRHYTHMIA [None]
  - CARDIOMEGALY [None]
  - DYSPHAGIA [None]
  - GENERAL PHYSICAL HEALTH DETERIORATION [None]
  - MYOCARDIAL INFARCTION [None]
  - PERICARDIAL EFFUSION [None]
  - PLEURAL EFFUSION [None]
  - POSTPERICARDIOTOMY SYNDROME [None]
  - RENAL FAILURE [None]
  - STAPHYLOCOCCAL BACTERAEMIA [None]
